FAERS Safety Report 21116961 (Version 1)
Quarter: 2022Q3

REPORT INFORMATION
  Report Type: Spontaneous
  Country: NO (occurrence: NO)
  Receive Date: 20220722
  Receipt Date: 20220722
  Transmission Date: 20221026
  Serious: Yes (Hospitalization, Other)
  Sender: FDA-Public Use
  Company Number: None

PATIENT
  Age: 14 Year
  Sex: Female

DRUGS (3)
  1. IBUPROFEN [Suspect]
     Active Substance: IBUPROFEN
     Indication: Intentional overdose
     Dosage: UNIT DOSE : 3.4 G,  FREQUENCY TIME : 1 TOTAL , DURATION : 1 DAY
     Route: 065
     Dates: start: 20220612, end: 20220612
  2. BISOLVON [Concomitant]
     Active Substance: BROMHEXINE HYDROCHLORIDE
     Indication: Intentional overdose
     Dosage: UNIT DOSE :  80 MG, DURATION :1 DAY, FREQUENCY TIME : 1 TOTAL, STRENGTH  :8MG, ADDITIONAL INFORMATIO
     Dates: start: 20220612, end: 20220612
  3. ACETAMINOPHEN [Concomitant]
     Active Substance: ACETAMINOPHEN
     Indication: Intentional overdose
     Dosage: UNIT DOSE :7 G , FREQUENCY TIME : 1 TOTAL, DURATION : 1 DAY,STRENGTH  :500MG, ADDITIONAL INFORMATION
     Dates: start: 20220612, end: 20220612

REACTIONS (5)
  - Tubulointerstitial nephritis [Recovering/Resolving]
  - Nausea [Recovering/Resolving]
  - Toxicity to various agents [Recovering/Resolving]
  - Abdominal pain [Recovering/Resolving]
  - Intentional overdose [Recovering/Resolving]

NARRATIVE: CASE EVENT DATE: 20220612
